FAERS Safety Report 5142106-8 (Version None)
Quarter: 2006Q4

REPORT INFORMATION
  Report Type: 
  Country: None (occurrence: None)
  Receive Date: 20061102
  Receipt Date: 20061025
  Transmission Date: 20070319
  Serious: Yes (Other)
  Sender: FDA-Public Use
  Company Number: PHEH2006US13437

PATIENT
  Age: 62 Year
  Sex: Female

DRUGS (1)
  1. FEMARA [Suspect]
     Indication: OVARIAN CANCER
     Dosage: 2.5 MG, QD
     Route: 048
     Dates: start: 20051101

REACTIONS (10)
  - ANTINUCLEAR ANTIBODY POSITIVE [None]
  - ARTHRALGIA [None]
  - DOUBLE STRANDED DNA ANTIBODY [None]
  - FATIGUE [None]
  - HEADACHE [None]
  - MUSCULOSKELETAL PAIN [None]
  - NAUSEA [None]
  - PAIN [None]
  - PAIN IN EXTREMITY [None]
  - SYSTEMIC LUPUS ERYTHEMATOSUS [None]
